FAERS Safety Report 5567117-X (Version None)
Quarter: 2007Q4

REPORT INFORMATION
  Report Type: 
  Country: None (occurrence: None)
  Receive Date: 20071130
  Receipt Date: 20070906
  Transmission Date: 20080405
  Serious: No
  Sender: FDA-Public Use
  Company Number: US200709002247

PATIENT
  Sex: Male

DRUGS (2)
  1. BYETTA [Suspect]
     Dosage: 5 UG
  2. METFORMIN HCL [Concomitant]

REACTIONS (2)
  - ACCIDENTAL OVERDOSE [None]
  - HYPOGLYCAEMIA [None]
